FAERS Safety Report 23633811 (Version 1)
Quarter: 2024Q1

REPORT INFORMATION
  Report Type: Spontaneous
  Country: CN (occurrence: CN)
  Receive Date: 20240314
  Receipt Date: 20240314
  Transmission Date: 20240409
  Serious: Yes (Other)
  Sender: FDA-Public Use
  Company Number: CN-NAPPMUNDI-GBR-2024-0115040

PATIENT
  Age: 63 Year
  Sex: Male

DRUGS (2)
  1. OXYCONTIN [Suspect]
     Active Substance: OXYCODONE HYDROCHLORIDE
     Indication: Lung neoplasm malignant
     Dosage: 20 MILLIGRAM, BID
     Route: 048
     Dates: start: 20240222
  2. OXYCONTIN [Suspect]
     Active Substance: OXYCODONE HYDROCHLORIDE
     Dosage: 50 MILLIGRAM, DAILY (20 MG IN THE MORNING AND 30 MG IN THE EVENING)
     Route: 048
     Dates: start: 20240229, end: 20240305

REACTIONS (2)
  - Depressed level of consciousness [Recovered/Resolved]
  - Somnolence [Recovering/Resolving]

NARRATIVE: CASE EVENT DATE: 20240305
